FAERS Safety Report 22320575 (Version 1)
Quarter: 2023Q2

REPORT INFORMATION
  Report Type: Report from Study
  Country: US (occurrence: US)
  Receive Date: 20230515
  Receipt Date: 20230515
  Transmission Date: 20230722
  Serious: No
  Sender: FDA-Public Use
  Company Number: US-INCYTE CORPORATION-2023IN003551

PATIENT

DRUGS (1)
  1. JAKAFI [Suspect]
     Active Substance: RUXOLITINIB
     Indication: Polycythaemia vera
     Dosage: 10 MILLIGRAM, BID
     Route: 065

REACTIONS (11)
  - Laboratory test abnormal [Unknown]
  - Fatigue [Recovering/Resolving]
  - Asthenia [Unknown]
  - Vitamin B12 abnormal [Unknown]
  - Blood testosterone abnormal [Unknown]
  - Vitamin D abnormal [Unknown]
  - Anxiety [Recovering/Resolving]
  - Chest discomfort [Unknown]
  - Feeling jittery [Unknown]
  - Feeling abnormal [Unknown]
  - Headache [Unknown]
